FAERS Safety Report 9083303 (Version 1)
Quarter: 2013Q1

REPORT INFORMATION
  Report Type: Report from Study
  Country: US (occurrence: US)
  Receive Date: 20130131
  Receipt Date: 20130131
  Transmission Date: 20140127
  Serious: No
  Sender: FDA-Public Use
  Company Number: US-ABBOTT-12P-163-0994047-00

PATIENT
  Age: 56 Year
  Sex: Male

DRUGS (12)
  1. HUMIRA [Suspect]
     Indication: RHEUMATOID ARTHRITIS
     Dates: start: 20111115
  2. AMLODIPINE [Concomitant]
     Indication: HYPERTENSION
     Dosage: DAILY
     Route: 048
  3. LISINOPRIL [Concomitant]
     Indication: HYPERTENSION
     Dosage: DAILY
     Route: 048
  4. TRAMADOL [Concomitant]
     Indication: PAIN
     Route: 048
  5. AMBINE [Concomitant]
     Indication: PRODUCT USED FOR UNKNOWN INDICATION
  6. CLONAZAPAM [Concomitant]
     Indication: ANXIETY
  7. VITAMINS [Concomitant]
     Indication: PRODUCT USED FOR UNKNOWN INDICATION
  8. APOLLO JUICE [Concomitant]
     Indication: ANTIINFLAMMATORY THERAPY
  9. DOXAZOSIN [Concomitant]
     Indication: BLOOD PRESSURE
     Dosage: AT NIGHT
  10. CELEBREX [Concomitant]
     Indication: PRODUCT USED FOR UNKNOWN INDICATION
  11. METHOTREXATE [Concomitant]
     Dosage: PILLS
  12. METHOTREXATE [Concomitant]
     Dosage: PILLS

REACTIONS (3)
  - Feeling abnormal [Unknown]
  - Hypertension [Not Recovered/Not Resolved]
  - Optic nerve disorder [Unknown]
